FAERS Safety Report 11812151 (Version 2)
Quarter: 2015Q4

REPORT INFORMATION
  Report Type: Spontaneous
  Country: IT (occurrence: IT)
  Receive Date: 20151208
  Receipt Date: 20151211
  Transmission Date: 20160305
  Serious: Yes (Hospitalization)
  Sender: FDA-Public Use
  Company Number: IT-ABBVIE-15P-083-1501500-00

PATIENT
  Sex: Male

DRUGS (2)
  1. VIEKIRAX [Suspect]
     Active Substance: OMBITASVIR\PARITAPREVIR\RITONAVIR
     Indication: CHRONIC HEPATITIS C
     Route: 048
     Dates: start: 20151029
  2. REBETOL [Concomitant]
     Active Substance: RIBAVIRIN
     Indication: PRODUCT USED FOR UNKNOWN INDICATION
     Dosage: 5 U
     Route: 048
     Dates: start: 20151029, end: 20151112

REACTIONS (2)
  - Liver disorder [Not Recovered/Not Resolved]
  - Hyperbilirubinaemia [Unknown]

NARRATIVE: CASE EVENT DATE: 20151110
